FAERS Safety Report 12834527 (Version 2)
Quarter: 2016Q4

REPORT INFORMATION
  Report Type: Spontaneous
  Country: FR (occurrence: FR)
  Receive Date: 20161010
  Receipt Date: 20161014
  Transmission Date: 20170207
  Serious: Yes (Hospitalization, Other)
  Sender: FDA-Public Use
  Company Number: FR-PFIZER INC-2016468530

PATIENT
  Age: 87 Year
  Sex: Female

DRUGS (8)
  1. IKOREL [Suspect]
     Active Substance: NICORANDIL
     Dosage: UNK
     Route: 048
     Dates: end: 20160729
  2. NITRIDERM [Suspect]
     Active Substance: NITROGLYCERIN
     Dosage: UNK
     Route: 062
     Dates: end: 20160804
  3. FUROSEMIDE. [Concomitant]
     Active Substance: FUROSEMIDE
     Dosage: UNK
     Dates: start: 20160809
  4. CLOPIDOGREL HYDROCHLORIDE [Concomitant]
     Active Substance: CLOPIDOGREL HYDROCHLORIDE
     Dosage: UNK
  5. RAMIPRIL. [Suspect]
     Active Substance: RAMIPRIL
     Dosage: UNK
     Route: 048
     Dates: end: 20160801
  6. FUROSEMIDE. [Concomitant]
     Active Substance: FUROSEMIDE
     Dosage: UNK
     Dates: end: 20160806
  7. KARDEGIC [Suspect]
     Active Substance: ASPIRIN LYSINE
     Dosage: UNK
     Route: 048
     Dates: end: 20160808
  8. OMEPRAZOLE. [Suspect]
     Active Substance: OMEPRAZOLE
     Dosage: UNK
     Route: 048
     Dates: end: 20160729

REACTIONS (4)
  - Hyponatraemia [Recovered/Resolved]
  - Fall [Unknown]
  - Tibia fracture [Unknown]
  - Inappropriate antidiuretic hormone secretion [Recovered/Resolved]

NARRATIVE: CASE EVENT DATE: 20160729
